FAERS Safety Report 10432254 (Version 1)
Quarter: 2014Q3

REPORT INFORMATION
  Report Type: Spontaneous
  Country: US (occurrence: None)
  Receive Date: 20140815
  Receipt Date: 20140815
  Transmission Date: 20150326
  Serious: No
  Sender: FDA-Public Use
  Company Number: A-NJ2014-988687

PATIENT
  Age: 57 Year
  Sex: Female

DRUGS (5)
  1. ALPHAGAN (BRIMONIDINE TARTRATE) [Concomitant]
  2. DIPHENHYDRAMINE (DIPHENHYDRAMINE) [Concomitant]
     Active Substance: DIPHENHYDRAMINE
  3. OPSUMIT [Suspect]
     Active Substance: MACITENTAN
     Indication: PULMONARY HYPERTENSION
     Route: 048
     Dates: start: 20140424
  4. XALATAN [Concomitant]
     Active Substance: LATANOPROST
  5. LATANOPROST (LATANOPROST) [Concomitant]

REACTIONS (6)
  - Diarrhoea [None]
  - Headache [None]
  - Local swelling [None]
  - Nasal congestion [None]
  - Hot flush [None]
  - Dizziness [None]

NARRATIVE: CASE EVENT DATE: 20140428
